FAERS Safety Report 4727226-1 (Version None)
Quarter: 2005Q3

REPORT INFORMATION
  Report Type: 
  Country: None (occurrence: None)
  Receive Date: 20050727
  Receipt Date: 20050727
  Transmission Date: 20060218
  Serious: Yes (Hospitalization)
  Sender: FDA-Public Use
  Company Number: None

PATIENT
  Age: 52 Year
  Sex: Male
  Weight: 81.7 kg

DRUGS (9)
  1. CISPLATIN [Suspect]
  2. APREPITANT [Concomitant]
  3. MORPHINE SO4 [Concomitant]
  4. PRAVASTATIN [Concomitant]
  5. SUCRALFATE [Concomitant]
  6. CODEINE [Concomitant]
  7. DIPHENHYDRAMINE HCL [Concomitant]
  8. ATENOLOL [Concomitant]
  9. ACETAMINOPHEN [Concomitant]

REACTIONS (2)
  - PYREXIA [None]
  - RASH [None]
